FAERS Safety Report 12634554 (Version 1)
Quarter: 2016Q3

REPORT INFORMATION
  Report Type: Spontaneous
  Country: US (occurrence: None)
  Receive Date: 20160808
  Receipt Date: 20160808
  Transmission Date: 20161109
  Serious: Yes (Other)
  Sender: FDA-Public Use
  Company Number: None

PATIENT
  Age: 79 Year
  Sex: Male

DRUGS (1)
  1. OCTREOTIDE 200MCG/ML MDV .5ML FRESENIUS KABI USA [Suspect]
     Active Substance: OCTREOTIDE
     Indication: INTESTINAL FISTULA
     Route: 058
     Dates: start: 201607, end: 20160802

REACTIONS (4)
  - Heart rate irregular [None]
  - Hypotension [None]
  - Heart rate decreased [None]
  - Dizziness [None]

NARRATIVE: CASE EVENT DATE: 20160802
